FAERS Safety Report 19400646 (Version 1)
Quarter: 2021Q2

REPORT INFORMATION
  Report Type: Spontaneous
  Country: CN (occurrence: CN)
  Receive Date: 20210610
  Receipt Date: 20210610
  Transmission Date: 20210717
  Serious: Yes (Hospitalization, Other)
  Sender: FDA-Public Use
  Company Number: CN-EMD SERONO-9242843

PATIENT
  Age: 30 Year
  Sex: Female
  Weight: 74 kg

DRUGS (17)
  1. DIANE (CYPROTERONE ACETATE\ETHINYL ESTRADIOL) [Suspect]
     Active Substance: CYPROTERONE ACETATE\ETHINYL ESTRADIOL
     Dates: start: 20200520, end: 20200524
  2. TRIPTORELIN ACETATE [Suspect]
     Active Substance: TRIPTORELIN ACETATE
     Route: 058
  3. GONAL?F [Suspect]
     Active Substance: FOLLITROPIN
     Indication: CONTROLLED OVARIAN STIMULATION
     Route: 058
     Dates: start: 20200603, end: 20200606
  4. GONAL?F [Suspect]
     Active Substance: FOLLITROPIN
     Route: 058
     Dates: start: 20200609, end: 20200613
  5. OVIDREL [Suspect]
     Active Substance: CHORIOGONADOTROPIN ALFA
     Indication: OVULATION INDUCTION
     Route: 058
     Dates: start: 20200614
  6. DECAPEPTYL                         /00486501/ [Suspect]
     Active Substance: GONADORELIN
     Indication: ASSISTED REPRODUCTIVE TECHNOLOGY
     Route: 058
     Dates: start: 20200520, end: 20200529
  7. DYDROGESTERONE [Suspect]
     Active Substance: DYDROGESTERONE
     Indication: BLOOD LUTEINISING HORMONE DECREASED
     Route: 048
  8. GONAL?F [Suspect]
     Active Substance: FOLLITROPIN
     Route: 058
     Dates: start: 20200607, end: 20200608
  9. DIANE (CYPROTERONE ACETATE\ETHINYL ESTRADIOL) [Suspect]
     Active Substance: CYPROTERONE ACETATE\ETHINYL ESTRADIOL
     Indication: PROPHYLAXIS
     Dates: start: 20200504, end: 20200519
  10. TRIPTORELIN ACETATE [Suspect]
     Active Substance: TRIPTORELIN ACETATE
     Indication: ASSISTED REPRODUCTIVE TECHNOLOGY
     Route: 058
  11. DECAPEPTYL                         /00486501/ [Suspect]
     Active Substance: GONADORELIN
     Route: 058
     Dates: start: 20200614
  12. PROGESTERONE. [Suspect]
     Active Substance: PROGESTERONE
     Indication: BLOOD LUTEINISING HORMONE DECREASED
     Route: 030
  13. PROGESTERONE. [Suspect]
     Active Substance: PROGESTERONE
     Route: 030
  14. PROGESTERONE. [Suspect]
     Active Substance: PROGESTERONE
     Route: 030
  15. DECAPEPTYL                         /00486501/ [Suspect]
     Active Substance: GONADORELIN
     Route: 058
     Dates: start: 20200530, end: 20200603
  16. PROGESTERONE. [Suspect]
     Active Substance: PROGESTERONE
     Route: 030
  17. DYDROGESTERONE [Suspect]
     Active Substance: DYDROGESTERONE
     Route: 048

REACTIONS (2)
  - Gestational diabetes [Recovered/Resolved]
  - Pre-eclampsia [Recovered/Resolved]

NARRATIVE: CASE EVENT DATE: 202011
